FAERS Safety Report 7504254-4 (Version None)
Quarter: 2011Q2

REPORT INFORMATION
  Report Type: 
  Country: None (occurrence: None)
  Receive Date: 20110525
  Receipt Date: 20110520
  Transmission Date: 20111010
  Serious: Yes (Death)
  Sender: FDA-Public Use
  Company Number: GB-ASTRAZENECA-2011SE31118

PATIENT
  Age: 55 Year
  Sex: Male

DRUGS (3)
  1. SEROQUEL XR [Suspect]
     Route: 048
  2. SEROQUEL XR [Suspect]
     Indication: MANIA
     Route: 048
  3. CLONAZEPAM [Concomitant]
     Indication: MANIA

REACTIONS (1)
  - DEATH [None]
